FAERS Safety Report 7419128-7 (Version None)
Quarter: 2011Q2

REPORT INFORMATION
  Report Type: 
  Country: None (occurrence: None)
  Receive Date: 20110415
  Receipt Date: 20110321
  Transmission Date: 20111010
  Serious: No
  Sender: FDA-Public Use
  Company Number: US-B.I. PHARMACEUTICALS,INC./RIDGEFIELD-2011-BP-09077BP

PATIENT
  Sex: Female

DRUGS (2)
  1. CATAPRES-TTS-1 [Suspect]
     Dosage: 0.2 MG
     Route: 061
  2. CATAPRES-TTS-1 [Suspect]
     Route: 061

REACTIONS (1)
  - PAIN IN EXTREMITY [None]
